FAERS Safety Report 19227887 (Version 1)
Quarter: 2021Q2

REPORT INFORMATION
  Report Type: Spontaneous
  Country: US (occurrence: US)
  Receive Date: 20210506
  Receipt Date: 20210506
  Transmission Date: 20210717
  Serious: No
  Sender: FDA-Public Use
  Company Number: US-ROCHE-2709987

PATIENT
  Sex: Female

DRUGS (1)
  1. ESBRIET [Suspect]
     Active Substance: PIRFENIDONE
     Indication: OSTEOARTHRITIS
     Dosage: TAKE 1 CAPSULE 3 TIMES DAILY FOR WEEK, THEN 2 CAPSULES THRICE DAILY FOR WEEK AND THEN TAKE 3 CAPSULE
     Route: 048
     Dates: start: 20201007

REACTIONS (4)
  - Diarrhoea [Recovered/Resolved]
  - Intentional product use issue [Unknown]
  - Off label use [Unknown]
  - Dizziness [Not Recovered/Not Resolved]
